FAERS Safety Report 6436244-7 (Version None)
Quarter: 2009Q4

REPORT INFORMATION
  Report Type: 
  Country: None (occurrence: None)
  Receive Date: 20091111
  Receipt Date: 20091110
  Transmission Date: 20100525
  Serious: Yes (Hospitalization)
  Sender: FDA-Public Use
  Company Number: A0735388A

PATIENT
  Age: 66 Year
  Sex: Male
  Weight: 102.3 kg

DRUGS (4)
  1. AVANDIA [Suspect]
     Dosage: 4MG PER DAY
     Route: 048
     Dates: start: 19990501, end: 20010601
  2. GLUCOPHAGE [Concomitant]
  3. INSULIN [Concomitant]
  4. PAXIL [Concomitant]

REACTIONS (7)
  - CARDIAC FAILURE CONGESTIVE [None]
  - CARDIOMEGALY [None]
  - CARDIOMYOPATHY [None]
  - DYSPNOEA [None]
  - LUNG DISORDER [None]
  - OEDEMA PERIPHERAL [None]
  - WEIGHT INCREASED [None]
